FAERS Safety Report 6377401-8 (Version None)
Quarter: 2009Q3

REPORT INFORMATION
  Report Type: 
  Country: None (occurrence: None)
  Receive Date: 20090923
  Receipt Date: 20090923
  Transmission Date: 20100115
  Serious: Yes (Life-Threatening)
  Sender: FDA-Public Use
  Company Number: None

PATIENT

DRUGS (4)
  1. HYDROMORPHONE [Suspect]
     Dosage: 0/0.4/10 PCA PEN
     Dates: start: 20090821
  2. HEPARIN INSULIN ASPART [Concomitant]
  3. DIPHENHYDROMINE [Concomitant]
  4. BUPIVACAINE [Concomitant]

REACTIONS (3)
  - BLOOD CREATININE INCREASED [None]
  - SEDATION [None]
  - SOMNOLENCE [None]
